FAERS Safety Report 9179027 (Version 1)
Quarter: 2012Q4

REPORT INFORMATION
  Report Type: Report from Study
  Country: US (occurrence: US)
  Receive Date: 20121029
  Receipt Date: 20121029
  Transmission Date: 20130627
  Serious: Yes (Hospitalization)
  Sender: FDA-Public Use
  Company Number: US-TEVA-366614USA

PATIENT
  Age: 59 None
  Sex: Male
  Weight: 114 kg

DRUGS (6)
  1. FLUOROURACIL [Suspect]
     Indication: COLORECTAL CANCER METASTATIC
     Dosage: 67.4286 Milligram Daily;
     Route: 040
     Dates: start: 20120815, end: 20120815
  2. FLUOROURACIL [Suspect]
     Dosage: 203.5714 Milligram Daily;
     Route: 042
     Dates: start: 20120815, end: 20120816
  3. FOLINIC ACID [Suspect]
     Indication: COLORECTAL CANCER METASTATIC
     Dosage: 67.4286 Milligram Daily;
     Route: 042
     Dates: start: 20120815, end: 20120815
  4. OXALIPLATIN [Suspect]
     Indication: COLORECTAL CANCER METASTATIC
     Dosage: 14.2857 Milligram Daily;
     Route: 042
     Dates: start: 20120815, end: 20120815
  5. BEVACIZUMAB [Suspect]
     Indication: COLORECTAL CANCER METASTATIC
     Dosage: 37.1429 Milligram Daily;
     Route: 042
     Dates: start: 20120815, end: 20120815
  6. PROCHLORPERAZINE [Concomitant]

REACTIONS (2)
  - Pyrexia [Recovered/Resolved]
  - Tachycardia [Recovered/Resolved]
